FAERS Safety Report 6306100-3 (Version None)
Quarter: 2009Q3

REPORT INFORMATION
  Report Type: 
  Country: None (occurrence: None)
  Receive Date: 20090812
  Receipt Date: 20090806
  Transmission Date: 20100115
  Serious: Yes (Other)
  Sender: FDA-Public Use
  Company Number: AU-WYE-G04201009

PATIENT
  Sex: Female
  Weight: 60.2 kg

DRUGS (2)
  1. PRISTIQ [Suspect]
     Dosage: 50MG DAILY
     Route: 048
     Dates: start: 20090218
  2. PRISTIQ [Suspect]
     Dosage: 100MG DAILY
     Route: 048
     Dates: end: 20090623

REACTIONS (1)
  - WEIGHT INCREASED [None]
